FAERS Safety Report 18247766 (Version 1)
Quarter: 2020Q3

REPORT INFORMATION
  Report Type: Spontaneous
  Country: CA (occurrence: CA)
  Receive Date: 20200909
  Receipt Date: 20200909
  Transmission Date: 20201103
  Serious: Yes (Death, Hospitalization)
  Sender: FDA-Public Use
  Company Number: CA-JNJFOC-A-NJ2018-172009

PATIENT
  Age: 45 Year
  Sex: Female
  Weight: 54.42 kg

DRUGS (22)
  1. TYLENOL [Concomitant]
     Active Substance: ACETAMINOPHEN
  2. CARIPUL [Suspect]
     Active Substance: EPOPROSTENOL
     Dosage: 3.6 NG/KG, PER MIN
     Route: 042
     Dates: start: 20180504
  3. ALDACTONE [Concomitant]
     Active Substance: SPIRONOLACTONE
  4. CARIPUL [Suspect]
     Active Substance: EPOPROSTENOL
     Indication: PULMONARY ARTERIAL HYPERTENSION
     Dosage: UNK
     Route: 042
     Dates: start: 20160606
  5. AMITRIPTYLINE [Concomitant]
     Active Substance: AMITRIPTYLINE
  6. GRAVOL [Concomitant]
     Active Substance: DIMENHYDRINATE
  7. SYMBICORT [Concomitant]
     Active Substance: BUDESONIDE\FORMOTEROL FUMARATE DIHYDRATE
  8. COLACE [Concomitant]
     Active Substance: DOCUSATE SODIUM
  9. LASIX [Concomitant]
     Active Substance: FUROSEMIDE
  10. EFFEXOR [Concomitant]
     Active Substance: VENLAFAXINE HYDROCHLORIDE
  11. PERCOCET [Concomitant]
     Active Substance: ACETAMINOPHEN\OXYCODONE HYDROCHLORIDE
  12. TADALAFIL. [Concomitant]
     Active Substance: TADALAFIL
     Dosage: 40 MG DAILY
     Dates: start: 2018
  13. BOSENTAN. [Concomitant]
     Active Substance: BOSENTAN
     Dosage: 125 MG BID
     Dates: start: 2018
  14. CARIPUL [Suspect]
     Active Substance: EPOPROSTENOL
     Indication: PULMONARY ARTERIAL HYPERTENSION
     Dosage: 75000 NG/KG, PER MIN
     Route: 042
  15. ELAVIL [Concomitant]
     Active Substance: AMITRIPTYLINE HYDROCHLORIDE
  16. SENOKOT [Concomitant]
     Active Substance: SENNOSIDES
  17. CARIPUL [Suspect]
     Active Substance: EPOPROSTENOL
     Dosage: 60000 NG
     Route: 042
  18. CARIPUL [Suspect]
     Active Substance: EPOPROSTENOL
     Dosage: 49 NG/KG, PER MIN
     Route: 042
  19. CLINDAMYCIN. [Concomitant]
     Active Substance: CLINDAMYCIN
  20. PANTOPRAZOLE [Concomitant]
     Active Substance: PANTOPRAZOLE
  21. SPIRIVA [Concomitant]
     Active Substance: TIOTROPIUM BROMIDE MONOHYDRATE
  22. PALAFER [Concomitant]
     Active Substance: FERROUS FUMARATE
     Dosage: UNK
     Dates: start: 201711

REACTIONS (10)
  - Condition aggravated [Unknown]
  - Lung disorder [Unknown]
  - International normalised ratio increased [Recovered/Resolved]
  - Adrenal haemorrhage [Recovered/Resolved]
  - Dyspnoea [Unknown]
  - Sluggishness [Unknown]
  - Nodule [Unknown]
  - Pain [Unknown]
  - Constipation [Unknown]
  - Cardiac failure [Fatal]
